FAERS Safety Report 8006333-4 (Version None)
Quarter: 2011Q4

REPORT INFORMATION
  Report Type: 
  Country: None (occurrence: None)
  Receive Date: 20111226
  Receipt Date: 20111220
  Transmission Date: 20120403
  Serious: Yes (Death, Other)
  Sender: FDA-Public Use
  Company Number: PHEH2011US009853

PATIENT
  Sex: Male

DRUGS (3)
  1. GLEEVEC [Suspect]
     Indication: CHRONIC MYELOID LEUKAEMIA
     Dates: start: 20040117
  2. ARANESP [Concomitant]
     Dosage: 600 MG, DAILY
     Dates: start: 20090816
  3. GLEEVEC [Suspect]
     Dosage: 600 MG, DAILY
     Dates: start: 20090816

REACTIONS (9)
  - FATIGUE [None]
  - DEATH [None]
  - BLOOD PRESSURE DIASTOLIC DECREASED [None]
  - BACK PAIN [None]
  - DECREASED APPETITE [None]
  - PNEUMONIA ASPIRATION [None]
  - PNEUMONITIS [None]
  - ANAEMIA [None]
  - DIARRHOEA [None]
